FAERS Safety Report 21598527 (Version 2)
Quarter: 2023Q1

REPORT INFORMATION
  Report Type: Spontaneous
  Country: CN (occurrence: None)
  Receive Date: 20221115
  Receipt Date: 20230213
  Transmission Date: 20230418
  Serious: Yes (Death, Hospitalization)
  Sender: FDA-Public Use
  Company Number: 2022A371910

PATIENT
  Sex: Female

DRUGS (1)
  1. BUDESONIDE\FORMOTEROL\GLYCOPYRRONIUM [Suspect]
     Active Substance: BUDESONIDE\FORMOTEROL\GLYCOPYRRONIUM
     Dosage: 160?G/7.2?G/4.8?G/PRESS 120PRESS/BOTTLE
     Route: 055

REACTIONS (4)
  - Death [Fatal]
  - Asthma [Unknown]
  - Device delivery system issue [Unknown]
  - Device malfunction [Unknown]
